FAERS Safety Report 12250084 (Version 2)
Quarter: 2016Q2

REPORT INFORMATION
  Report Type: Report from Study
  Country: AR (occurrence: AR)
  Receive Date: 20160408
  Receipt Date: 20160413
  Transmission Date: 20160815
  Serious: Yes (Other)
  Sender: FDA-Public Use
  Company Number: AR-ABBVIE-16P-007-1569873-00

PATIENT
  Age: 77 Year
  Sex: Male

DRUGS (2)
  1. DASABUVIR [Suspect]
     Active Substance: DASABUVIR
     Indication: CHRONIC HEPATITIS C
     Route: 048
     Dates: start: 201507, end: 201511
  2. OMBITASVIR/PARITAPREVIR/RITONAVIR [Suspect]
     Active Substance: OMBITASVIR\PARITAPREVIR\RITONAVIR
     Indication: CHRONIC HEPATITIS C
     Route: 048
     Dates: start: 201507, end: 201511

REACTIONS (10)
  - Arthralgia [Not Recovered/Not Resolved]
  - Protein total increased [Not Recovered/Not Resolved]
  - Gamma-glutamyltransferase increased [Not Recovered/Not Resolved]
  - Autoimmune hepatitis [Unknown]
  - Drug-induced liver injury [Unknown]
  - Blood albumin increased [Not Recovered/Not Resolved]
  - Asthenia [Unknown]
  - Portal vein thrombosis [Unknown]
  - Hypertransaminasaemia [Not Recovered/Not Resolved]
  - Hepatic enzyme increased [Not Recovered/Not Resolved]
